FAERS Safety Report 6044917-3 (Version None)
Quarter: 2009Q1

REPORT INFORMATION
  Report Type: 
  Country: None (occurrence: None)
  Receive Date: 20090116
  Receipt Date: 20090116
  Transmission Date: 20090719
  Serious: Yes (Other)
  Sender: FDA-Public Use
  Company Number: None

PATIENT
  Sex: Female
  Weight: 16.1027 kg

DRUGS (2)
  1. CLONIDINE [Suspect]
     Indication: ANXIETY
     Dosage: 1 HALF OF .1 MG 1 X DAY ORAL
     Route: 048
     Dates: start: 20081201, end: 20090101
  2. CLONIDINE [Suspect]
     Indication: PSYCHOMOTOR HYPERACTIVITY
     Dosage: 1 HALF OF .1 MG 1 X DAY ORAL
     Route: 048
     Dates: start: 20081201, end: 20090101

REACTIONS (4)
  - ABNORMAL DREAMS [None]
  - HALLUCINATION [None]
  - HALLUCINATION, AUDITORY [None]
  - NIGHTMARE [None]
